FAERS Safety Report 24324507 (Version 1)
Quarter: 2024Q3

REPORT INFORMATION
  Report Type: Spontaneous
  Country: CN (occurrence: CN)
  Receive Date: 20240916
  Receipt Date: 20240916
  Transmission Date: 20241017
  Serious: Yes (Hospitalization)
  Sender: PAREXEL
  Company Number: CN-SHANGHAI JUNSHI BIOSCIENCES CO., LTD.-CN2024011343

PATIENT

DRUGS (3)
  1. TORIPALIMAB [Suspect]
     Active Substance: TORIPALIMAB
     Indication: Oesophageal squamous cell carcinoma
     Dosage: 240 MG
     Route: 041
     Dates: start: 20240815, end: 20240815
  2. CISPLATIN [Suspect]
     Active Substance: CISPLATIN
     Indication: Oesophageal squamous cell carcinoma
     Dosage: 120 MG
     Route: 041
     Dates: start: 20240815, end: 20240818
  3. PACLITAXEL [Suspect]
     Active Substance: PACLITAXEL
     Indication: Oesophageal squamous cell carcinoma
     Dosage: 270 MG
     Route: 041
     Dates: start: 20240815, end: 20240815

REACTIONS (1)
  - Myelosuppression [Recovering/Resolving]

NARRATIVE: CASE EVENT DATE: 20240825
